FAERS Safety Report 4433878-6 (Version None)
Quarter: 2004Q3

REPORT INFORMATION
  Report Type: 
  Country: None (occurrence: None)
  Receive Date: 20040825
  Receipt Date: 20040806
  Transmission Date: 20050211
  Serious: Yes (Hospitalization, Other)
  Sender: FDA-Public Use
  Company Number: USA040772382

PATIENT
  Age: 89 Year
  Sex: Female

DRUGS (1)
  1. FORTEO [Suspect]
     Indication: OSTEOPOROSIS
     Dates: end: 20040601

REACTIONS (5)
  - ANAEMIA [None]
  - BLOOD DISORDER [None]
  - COLON CANCER [None]
  - HAEMATOCHEZIA [None]
  - OEDEMA PERIPHERAL [None]
